FAERS Safety Report 8346032-2 (Version None)
Quarter: 2012Q2

REPORT INFORMATION
  Report Type: 
  Country: None (occurrence: None)
  Receive Date: 20120509
  Receipt Date: 20120502
  Transmission Date: 20120825
  Serious: No
  Sender: FDA-Public Use
  Company Number: US-PFIZER INC-2012093851

PATIENT
  Age: 70 Year
  Sex: Female

DRUGS (1)
  1. PROCARDIA [Suspect]
     Indication: BLOOD PRESSURE
     Dosage: UNK

REACTIONS (2)
  - BLOOD PRESSURE INCREASED [None]
  - HEADACHE [None]
